FAERS Safety Report 19372767 (Version 2)
Quarter: 2024Q3

REPORT INFORMATION
  Report Type: Spontaneous
  Country: PL (occurrence: PL)
  Receive Date: 20210604
  Receipt Date: 20240731
  Transmission Date: 20241016
  Serious: Yes (Other)
  Sender: ROCHE
  Company Number: PL-ACCORD-206041

PATIENT
  Age: 72 Year
  Sex: Female

DRUGS (12)
  1. HERCEPTIN [Suspect]
     Active Substance: TRASTUZUMAB
     Indication: Intestinal metastasis
     Dosage: POWDER FOR CONCENTRATE FOR SOLUTION FOR INFUSION
     Route: 065
  2. HERCEPTIN [Suspect]
     Active Substance: TRASTUZUMAB
     Indication: Breast cancer metastatic
  3. HERCEPTIN [Suspect]
     Active Substance: TRASTUZUMAB
     Indication: Invasive lobular breast carcinoma
  4. HERCEPTIN [Suspect]
     Active Substance: TRASTUZUMAB
     Indication: Intestinal metastasis
  5. PERTUZUMAB [Suspect]
     Active Substance: PERTUZUMAB
     Indication: Intestinal metastasis
     Dosage: UNK, CYCLIC
     Route: 065
  6. PERTUZUMAB [Suspect]
     Active Substance: PERTUZUMAB
     Indication: Invasive lobular breast carcinoma
  7. PERTUZUMAB [Suspect]
     Active Substance: PERTUZUMAB
     Indication: Breast cancer metastatic
  8. PERTUZUMAB [Suspect]
     Active Substance: PERTUZUMAB
     Indication: Intestinal metastasis
  9. DOCETAXEL [Suspect]
     Active Substance: DOCETAXEL\DOCETAXEL ANHYDROUS
     Indication: Intestinal metastasis
     Dosage: UNK UNK, QCY
     Route: 065
  10. DOCETAXEL [Suspect]
     Active Substance: DOCETAXEL\DOCETAXEL ANHYDROUS
     Indication: Invasive lobular breast carcinoma
     Route: 065
  11. DOCETAXEL [Suspect]
     Active Substance: DOCETAXEL\DOCETAXEL ANHYDROUS
     Indication: Intestinal metastasis
  12. DOCETAXEL [Suspect]
     Active Substance: DOCETAXEL\DOCETAXEL ANHYDROUS
     Indication: Breast cancer metastatic

REACTIONS (6)
  - Colon neoplasm [Recovered/Resolved]
  - Condition aggravated [Recovered/Resolved]
  - Polyneuropathy [Recovered/Resolved]
  - Intestinal metastasis [Recovered/Resolved]
  - Off label use [Unknown]
  - Off label use [Unknown]
